FAERS Safety Report 10600290 (Version 2)
Quarter: 2015Q4

REPORT INFORMATION
  Report Type: Report from Study
  Country: US (occurrence: US)
  Receive Date: 20141123
  Receipt Date: 20151106
  Transmission Date: 20160304
  Serious: No
  Sender: FDA-Public Use
  Company Number: US-AMGEN INC.-USASL2014089139

PATIENT
  Age: 88 Year
  Sex: Female

DRUGS (2)
  1. HUMIRA [Suspect]
     Active Substance: ADALIMUMAB
     Indication: PRODUCT USED FOR UNKNOWN INDICATION
     Dosage: UNK
     Route: 065
  2. ENBREL [Suspect]
     Active Substance: ETANERCEPT
     Indication: RHEUMATOID ARTHRITIS
     Dosage: 50 MG, QWK
     Route: 065
     Dates: start: 20000101

REACTIONS (9)
  - Arthralgia [Unknown]
  - VIIth nerve paralysis [Unknown]
  - Finger deformity [Unknown]
  - Herpes zoster [Unknown]
  - Paronychia [Not Recovered/Not Resolved]
  - Musculoskeletal pain [Unknown]
  - Walking aid user [Unknown]
  - Varicella [Unknown]
  - Pain in extremity [Unknown]

NARRATIVE: CASE EVENT DATE: 201410
